FAERS Safety Report 7338104-6 (Version None)
Quarter: 2011Q1

REPORT INFORMATION
  Report Type: 
  Country: None (occurrence: None)
  Receive Date: 20110210
  Receipt Date: 20101222
  Transmission Date: 20110831
  Serious: No
  Sender: FDA-Public Use
  Company Number: 1000017882

PATIENT
  Age: 60 Year
  Sex: Female

DRUGS (18)
  1. VITAMIN D (VITAMIN D) (VITAMIN D) [Concomitant]
  2. FIORICET (BUTALBITAL, ACETAMINOPHEN, CAFFEINE) (BUTALBITAL, ACETAMINOP [Concomitant]
  3. DIOVAN/HCT (VALSARTAN, HYDROCHLOROTHIAZIDE) (VALSARTAN, HYDROCHLOROTHI [Concomitant]
  4. TRICOR [Concomitant]
  5. METOPROLOL SUCCINATE [Concomitant]
  6. CELEBREX [Concomitant]
  7. LIDOCAINE [Concomitant]
  8. SYNTHROID (LEVOTHYROXINE SODIUM) (LEVOTHYROXINE SODIUM) [Concomitant]
  9. MOTRIN [Concomitant]
  10. DETROL LA (TOLTERODINE L-TARTRATE) (TOLTERODINE L-TARTRATE) [Concomitant]
  11. XANAX [Concomitant]
  12. LIBRAX (CHLORDIAZEPOXIDE, CLIDINIUM) (CHLORDIAZEPOXIDE, CLIDINIUM) [Concomitant]
  13. SAVELLA [Suspect]
     Indication: FIBROMYALGIA
     Dosage: SEE IMAGE
     Route: 048
     Dates: start: 20101208, end: 20101211
  14. SAVELLA [Suspect]
     Indication: FIBROMYALGIA
     Dosage: SEE IMAGE
     Route: 048
     Dates: start: 20101205, end: 20101205
  15. SAVELLA [Suspect]
     Indication: FIBROMYALGIA
     Dosage: SEE IMAGE
     Route: 048
     Dates: start: 20101206, end: 20101207
  16. SAVELLA [Suspect]
     Indication: FIBROMYALGIA
     Dosage: SEE IMAGE
     Route: 048
     Dates: start: 20101212
  17. VICODIN ES (VICODIN) (VICODIN) [Concomitant]
  18. SKELAXIN (METAXALONE) (METAXALONE) [Concomitant]

REACTIONS (2)
  - HYPERHIDROSIS [None]
  - MIGRAINE [None]
